FAERS Safety Report 6178039-8 (Version None)
Quarter: 2009Q2

REPORT INFORMATION
  Report Type: 
  Country: None (occurrence: None)
  Receive Date: 20090504
  Receipt Date: 20090126
  Transmission Date: 20091009
  Serious: No
  Sender: FDA-Public Use
  Company Number: US-ALEXION-A200900066

PATIENT
  Sex: Female

DRUGS (8)
  1. SOLIRIS [Suspect]
     Indication: PAROXYSMAL NOCTURNAL HAEMOGLOBINURIA
     Dosage: 600 MG, QW
     Route: 042
     Dates: start: 20071002, end: 20071001
  2. SOLIRIS [Suspect]
     Dosage: 900 MG, Q2W
     Route: 042
     Dates: start: 20071030
  3. ASPIRIN [Concomitant]
     Indication: CARDIAC DISORDER
     Dosage: 81 MG, QD
     Route: 048
  4. COUMADIN [Concomitant]
     Indication: CARDIAC DISORDER
     Dosage: 7.5 MG, QD
     Route: 048
  5. LASIX [Concomitant]
     Indication: CARDIAC DISORDER
     Dosage: 20 MG, QD
     Route: 048
  6. NITRO                              /00003201/ [Concomitant]
     Indication: CARDIAC DISORDER
     Dosage: 0.04 MG, PRN
     Route: 048
  7. PLAVIX [Concomitant]
     Indication: ARTERIAL STENT INSERTION
     Dosage: 75 MG, QD
     Route: 048
  8. TRENTAL ER [Concomitant]
     Indication: CARDIAC DISORDER
     Dosage: 400 MG, TID
     Route: 048

REACTIONS (3)
  - DYSPNOEA EXERTIONAL [None]
  - LUNG DISORDER [None]
  - NASOPHARYNGITIS [None]
